FAERS Safety Report 7534381-7 (Version None)
Quarter: 2011Q2

REPORT INFORMATION
  Report Type: 
  Country: None (occurrence: None)
  Receive Date: 20110608
  Receipt Date: 20110516
  Transmission Date: 20111010
  Serious: No
  Sender: FDA-Public Use
  Company Number: US-AMGEN-USASP2011025258

PATIENT
  Age: 75 Year
  Sex: Female

DRUGS (5)
  1. NEXIUM [Concomitant]
     Dosage: 40 MG, TID
  2. NEXIUM [Concomitant]
     Dosage: 40 MG, QD
  3. CALCIUM CARBONATE [Concomitant]
  4. VITAMIN A [Concomitant]
  5. PROLIA [Suspect]
     Indication: OSTEOPOROSIS POSTMENOPAUSAL
     Dosage: 60 MG, Q6MO
     Dates: start: 20110505

REACTIONS (2)
  - NAUSEA [None]
  - GASTROOESOPHAGEAL REFLUX DISEASE [None]
